FAERS Safety Report 7583836 (Version 2)
Quarter: 2012Q4

REPORT INFORMATION
  Report Type: 
  Country: FR (occurrence: FR)
  Receive Date: 20100914
  Receipt Date: 20121218
  Transmission Date: 20130627
  Serious: Yes (Hospitalization, Disabling)
  Sender: FDA-Public Use
  Company Number: FR-MERCK-1009FRA00024

PATIENT
  Age: 75 Year
  Sex: Female
  Weight: 65 kg

DRUGS (9)
  1. XELEVIA [Suspect]
     Indication: DIABETES MELLITUS
     Dosage: 100 mg, qd
     Route: 048
     Dates: start: 200912, end: 201003
  2. TAHOR [Suspect]
     Indication: HYPERCHOLESTEROLAEMIA
     Dosage: 40 mg, qd
     Route: 048
     Dates: end: 201003
  3. PARIET [Suspect]
     Indication: GASTROOESOPHAGEAL REFLUX DISEASE
     Dosage: 20 mg, qd
     Route: 048
     Dates: end: 201002
  4. DEROXAT [Suspect]
     Indication: DEPRESSION
     Dosage: 20 mg, qd
     Route: 048
     Dates: end: 201001
  5. METFORMIN HYDROCHLORIDE [Suspect]
     Indication: DIABETES MELLITUS
     Dosage: 500 mg, bid
     Route: 048
  6. CARDENSIEL [Suspect]
     Indication: HYPERTENSION
     Dosage: 5 mg, qd
     Route: 048
  7. TAREG [Suspect]
     Indication: HYPERTENSION
     Dosage: 80 mg, qd
     Route: 048
  8. KARDEGIC [Suspect]
     Indication: MYOCARDIAL ISCHAEMIA
     Dosage: 1 DF, qd
     Route: 048
  9. LEVOTHYROX [Suspect]
     Indication: HYPOTHYROIDISM
     Dosage: 75 ?g, qd
     Route: 048

REACTIONS (3)
  - Rhabdomyolysis [Recovering/Resolving]
  - Blood creatine phosphokinase increased [Recovering/Resolving]
  - Myalgia [Recovering/Resolving]
